FAERS Safety Report 14480186 (Version 1)
Quarter: 2018Q1

REPORT INFORMATION
  Report Type: Spontaneous
  Country: US (occurrence: US)
  Receive Date: 20180202
  Receipt Date: 20180202
  Transmission Date: 20180509
  Serious: No
  Sender: FDA-Public Use
  Company Number: US-009507513-1801USA013487

PATIENT
  Sex: Female

DRUGS (2)
  1. NEXPLANON [Suspect]
     Active Substance: ETONOGESTREL
     Dosage: 1 ROD, EVERY 3 YEARS
     Route: 059
     Dates: start: 201501, end: 20180112
  2. NEXPLANON [Suspect]
     Active Substance: ETONOGESTREL
     Dosage: 1 ROD (68 MG), IN THE LEFT ARM
     Route: 059
     Dates: start: 20180112

REACTIONS (4)
  - Implant site bruising [Unknown]
  - Implant site haematoma [Recovered/Resolved]
  - Implant site reaction [Unknown]
  - Implant site erythema [Unknown]

NARRATIVE: CASE EVENT DATE: 201801
